FAERS Safety Report 4841865-9 (Version None)
Quarter: 2005Q4

REPORT INFORMATION
  Report Type: 
  Country: None (occurrence: None)
  Receive Date: 20051130
  Receipt Date: 20050919
  Transmission Date: 20060501
  Serious: No
  Sender: FDA-Public Use
  Company Number: US-GLAXOSMITHKLINE-A0574833A

PATIENT
  Sex: Male

DRUGS (4)
  1. WELLBUTRIN XL [Suspect]
     Dosage: 450MG PER DAY
     Route: 048
  2. LAMICTAL [Concomitant]
  3. AVAPRO [Concomitant]
  4. LIPITOR [Concomitant]

REACTIONS (1)
  - DYSKINESIA [None]
